FAERS Safety Report 25768167 (Version 1)
Quarter: 2025Q3

REPORT INFORMATION
  Report Type: Spontaneous
  Country: US (occurrence: US)
  Receive Date: 20250905
  Receipt Date: 20250905
  Transmission Date: 20251020
  Serious: No
  Sender: DOMPE FARMACEUTICI
  Company Number: US-FARMAPROD-202506-1868

PATIENT
  Age: 72 Year
  Sex: Female

DRUGS (14)
  1. OXERVATE [Suspect]
     Active Substance: CENEGERMIN-BKBJ
     Indication: Dry eye
     Route: 047
     Dates: start: 20250528
  2. OXERVATE [Suspect]
     Active Substance: CENEGERMIN-BKBJ
     Indication: Product used for unknown indication
  3. RETAINE MGD [Concomitant]
     Active Substance: LIGHT MINERAL OIL\MINERAL OIL
  4. FISH OIL [Concomitant]
     Active Substance: FISH OIL
  5. SYNTHROID [Concomitant]
     Active Substance: LEVOTHYROXINE SODIUM
  6. CYTOMEL [Concomitant]
     Active Substance: LIOTHYRONINE SODIUM
  7. REPATHA [Concomitant]
     Active Substance: EVOLOCUMAB
  8. POTASSIUM CHLORIDE [Concomitant]
     Active Substance: POTASSIUM CHLORIDE
  9. SPIRONOLACTONE [Concomitant]
     Active Substance: SPIRONOLACTONE
  10. CYMBALTA [Concomitant]
     Active Substance: DULOXETINE HYDROCHLORIDE
  11. PROTONIX [Concomitant]
     Active Substance: PANTOPRAZOLE SODIUM
  12. ADDERALL [Concomitant]
     Active Substance: AMPHETAMINE ASPARTATE\AMPHETAMINE SULFATE\DEXTROAMPHETAMINE SACCHARATE\DEXTROAMPHETAMINE SULFATE
  13. PREGABALIN [Concomitant]
     Active Substance: PREGABALIN
  14. MOUNJARO [Concomitant]
     Active Substance: TIRZEPATIDE

REACTIONS (3)
  - Ocular hyperaemia [Unknown]
  - Eye pain [Unknown]
  - Off label use [Unknown]

NARRATIVE: CASE EVENT DATE: 20250602
